FAERS Safety Report 8294073-6 (Version None)
Quarter: 2012Q2

REPORT INFORMATION
  Report Type: 
  Country: None (occurrence: None)
  Receive Date: 20120413
  Receipt Date: 20120308
  Transmission Date: 20120825
  Serious: Yes (Other)
  Sender: FDA-Public Use
  Company Number: GGEL20120300252

PATIENT
  Age: 34 Year
  Sex: Female

DRUGS (4)
  1. SUBUTEX (BUPRENORPHINE) (TABLETS) [Concomitant]
  2. STOOL SOFTENER (TABLETS) [Concomitant]
  3. PROZAC (FLUOXETINE) (TABLETS) [Concomitant]
  4. NORGESTIMATE AND ETHINYL ESTRADIOL [Suspect]
     Indication: ORAL CONTRACEPTION
     Dosage: 1 IN 1 D, ORAL
     Route: 048
     Dates: start: 20090101, end: 20120126

REACTIONS (4)
  - PREGNANCY ON ORAL CONTRACEPTIVE [None]
  - DRUG INEFFECTIVE [None]
  - PRODUCT QUALITY ISSUE [None]
  - MATERNAL EXPOSURE DURING PREGNANCY [None]
